FAERS Safety Report 19510250 (Version 2)
Quarter: 2021Q4

REPORT INFORMATION
  Report Type: Spontaneous
  Country: US (occurrence: US)
  Receive Date: 20210708
  Receipt Date: 20211015
  Transmission Date: 20220303
  Serious: No
  Sender: FDA-Public Use
  Company Number: US-BIOMARINAP-US-2021-137193

PATIENT
  Age: 17 Year
  Sex: Male
  Weight: 75.63 kg

DRUGS (1)
  1. NAGLAZYME [Suspect]
     Active Substance: GALSULFASE
     Indication: Mucopolysaccharidosis VI
     Dosage: 15,UNK, QW
     Route: 065
     Dates: start: 20150611

REACTIONS (1)
  - Eye disorder [Unknown]
